FAERS Safety Report 6807161-5 (Version None)
Quarter: 2010Q2

REPORT INFORMATION
  Report Type: 
  Country: None (occurrence: None)
  Receive Date: 20100629
  Receipt Date: 20080902
  Transmission Date: 20101027
  Serious: No
  Sender: FDA-Public Use
  Company Number: US-PFIZER INC-2008052686

PATIENT
  Sex: Male
  Weight: 68.04 kg

DRUGS (4)
  1. TIKOSYN [Suspect]
     Indication: ATRIAL FIBRILLATION
     Route: 048
     Dates: start: 20080617
  2. VALSARTAN [Concomitant]
     Indication: BLOOD PRESSURE
  3. ZOCOR [Concomitant]
  4. WARFARIN SODIUM [Concomitant]

REACTIONS (2)
  - ARTHRALGIA [None]
  - PAIN IN EXTREMITY [None]
